FAERS Safety Report 9304307 (Version 2)
Quarter: 2013Q2

REPORT INFORMATION
  Report Type: Spontaneous
  Country: US (occurrence: US)
  Receive Date: 20130522
  Receipt Date: 20130611
  Transmission Date: 20140414
  Serious: No
  Sender: FDA-Public Use
  Company Number: US-PFIZER INC-2013151414

PATIENT
  Age: 61 Year
  Sex: Male

DRUGS (1)
  1. LATANOPROST [Suspect]
     Indication: GLAUCOMA
     Dosage: 1 GTT , 1X/DAY (1 DROP LEFT EYE AT BEDTIME)
     Route: 047

REACTIONS (1)
  - Eye irritation [Unknown]
